FAERS Safety Report 5154491-1 (Version None)
Quarter: 2006Q4

REPORT INFORMATION
  Report Type: 
  Country: None (occurrence: None)
  Receive Date: 20061114
  Receipt Date: 20061031
  Transmission Date: 20070319
  Serious: Yes (Hospitalization)
  Sender: FDA-Public Use
  Company Number: HQWYE904211OCT06

PATIENT
  Age: 57 Year
  Sex: Male

DRUGS (11)
  1. ANCARON (AMIODARONE, TABLET) [Suspect]
     Indication: VENTRICULAR TACHYCARDIA
     Dosage: 70 MG 1X PER 1 DAY ORAL
     Route: 048
     Dates: start: 20040801, end: 20060701
  2. ANCARON (AMIODARONE, TABLET) [Suspect]
     Indication: VENTRICULAR TACHYCARDIA
     Dosage: 70 MG 1X PER 1 DAY ORAL
     Route: 048
     Dates: start: 20060713, end: 20060831
  3. CARVEDILOL [Concomitant]
  4. ALDACTONE [Concomitant]
  5. ALLOPURINOL [Concomitant]
  6. BAYASPIRINA (ACETYLSALICYLIC ACID) [Concomitant]
  7. SLOW-K [Concomitant]
  8. LASIX [Concomitant]
  9. MUCOSTA (REBAMIPIDE) [Concomitant]
  10. SIGMART (NICORANDIL) [Concomitant]
  11. WARFARIN SODIUM [Concomitant]

REACTIONS (5)
  - CRYPTOGENIC ORGANISING PNEUMONIA [None]
  - HYPOTHYROIDISM [None]
  - INTERSTITIAL LUNG DISEASE [None]
  - LUNG INFECTION [None]
  - VENTRICULAR TACHYCARDIA [None]
